FAERS Safety Report 24622482 (Version 2)
Quarter: 2025Q1

REPORT INFORMATION
  Report Type: Spontaneous
  Country: DE (occurrence: DE)
  Receive Date: 20241115
  Receipt Date: 20250102
  Transmission Date: 20250408
  Serious: Yes (Hospitalization)
  Sender: UCB
  Company Number: DE-UCBSA-2024058391

PATIENT
  Sex: Male
  Weight: 104 kg

DRUGS (5)
  1. CIMZIA [Suspect]
     Active Substance: CERTOLIZUMAB PEGOL
     Indication: Psoriatic arthropathy
     Dosage: 200 MILLIGRAM, EV 2 WEEKS(QOW)
     Route: 058
     Dates: start: 20150223, end: 20241001
  2. ESOMEPRAZOLE SODIUM [Concomitant]
     Active Substance: ESOMEPRAZOLE SODIUM
     Indication: Product used for unknown indication
     Dosage: 20 MILLIGRAM, ONCE DAILY (QD)
  3. METHOTREXATE SODIUM [Concomitant]
     Active Substance: METHOTREXATE SODIUM
     Indication: Psoriatic arthropathy
     Dosage: 7.5 MILLIGRAM, WEEKLY (QW) ON MONDAYS (TAKE BETWEEN MEALS, WITH PLENTY OF FLUID)
     Route: 048
     Dates: start: 20100608
  4. FOLIC ACID [Concomitant]
     Active Substance: FOLIC ACID
     Indication: Product used for unknown indication
     Dosage: 5 MILLIGRAM, ONCE DAILY (QD)
  5. METAMIZOLE [Concomitant]
     Active Substance: METAMIZOLE
     Indication: Product used for unknown indication
     Dosage: 500 MILLIGRAM, 4X/DAY (QID) (AS NEEDED)

REACTIONS (9)
  - Hospitalisation [Recovered/Resolved]
  - Peripheral sensory neuropathy [Recovered/Resolved]
  - Quadriparesis [Recovered/Resolved]
  - Eyelid ptosis [Unknown]
  - Respiratory tract infection [Unknown]
  - Overweight [Unknown]
  - Hypertension [Unknown]
  - Nightmare [Unknown]
  - Headache [Unknown]

NARRATIVE: CASE EVENT DATE: 20240101
